FAERS Safety Report 7533822-9 (Version None)
Quarter: 2011Q2

REPORT INFORMATION
  Report Type: 
  Country: None (occurrence: None)
  Receive Date: 20110608
  Receipt Date: 20060605
  Transmission Date: 20111010
  Serious: Yes (Death)
  Sender: FDA-Public Use
  Company Number: PHHO2006PH02536

PATIENT
  Sex: Female

DRUGS (2)
  1. VALSARTAN  AND HYDROCHLOROTHIAZIDE [Suspect]
     Dosage: 92.5 MG, UNK
     Route: 048
     Dates: start: 20041029, end: 20041120
  2. DILTIAZEM [Concomitant]

REACTIONS (4)
  - MULTI-ORGAN FAILURE [None]
  - CARDIAC ARREST [None]
  - LYMPHOMA [None]
  - PALPITATIONS [None]
